FAERS Safety Report 7356473-8 (Version None)
Quarter: 2011Q1

REPORT INFORMATION
  Report Type: 
  Country: None (occurrence: None)
  Receive Date: 20110316
  Receipt Date: 20110307
  Transmission Date: 20110831
  Serious: Yes (Other)
  Sender: FDA-Public Use
  Company Number: US-AMGEN-USASP2011012718

PATIENT
  Age: 30 Year
  Sex: Female

DRUGS (2)
  1. ENBREL [Suspect]
     Indication: PSORIATIC ARTHROPATHY
     Dosage: 50 MG, QWK
     Dates: start: 20110126, end: 20110216
  2. ENBREL [Suspect]
     Indication: PSORIASIS

REACTIONS (3)
  - CATHETER SITE RELATED REACTION [None]
  - CENTRAL VENOUS CATHETERISATION [None]
  - SYSTEMIC LUPUS ERYTHEMATOSUS [None]
